FAERS Safety Report 25246598 (Version 1)
Quarter: 2025Q2

REPORT INFORMATION
  Report Type: Spontaneous
  Country: IT (occurrence: IT)
  Receive Date: 20250428
  Receipt Date: 20250428
  Transmission Date: 20250716
  Serious: Yes (Hospitalization, Other)
  Sender: ACCORD
  Company Number: IT-EMA-DD-20250321-7482691-073220

PATIENT
  Age: 89 Year
  Sex: Female

DRUGS (5)
  1. RAMIPRIL [Suspect]
     Active Substance: RAMIPRIL
     Indication: Product used for unknown indication
     Dosage: 2.5 MG
  2. ATENOLOL [Suspect]
     Active Substance: ATENOLOL
     Indication: Product used for unknown indication
     Dosage: 100 MG
  3. FLECAINIDE [Interacting]
     Active Substance: FLECAINIDE
     Indication: Atrial fibrillation
     Dosage: 200 MG, QD
     Dates: start: 2013
  4. GABAPENTIN [Interacting]
     Active Substance: GABAPENTIN
     Indication: Trigeminal neuralgia
     Dosage: 300 MG, TID
  5. PRADAXA [Suspect]
     Active Substance: DABIGATRAN ETEXILATE MESYLATE
     Indication: Product used for unknown indication
     Dosage: 110 MG, BID

REACTIONS (6)
  - Dizziness [Recovered/Resolved]
  - Asthenia [Recovered/Resolved]
  - Electrocardiogram QRS complex prolonged [Recovered/Resolved]
  - Toxicity to various agents [Unknown]
  - Bradyarrhythmia [Recovered/Resolved]
  - Drug interaction [Unknown]
